FAERS Safety Report 13815573 (Version 2)
Quarter: 2017Q3

REPORT INFORMATION
  Report Type: Spontaneous
  Country: US (occurrence: US)
  Receive Date: 20170731
  Receipt Date: 20170822
  Transmission Date: 20171127
  Serious: No
  Sender: FDA-Public Use
  Company Number: US-GLAXOSMITHKLINE-US2017113684

PATIENT
  Age: 67 Year
  Sex: Female

DRUGS (2)
  1. PREVACID 24 HR [Suspect]
     Active Substance: LANSOPRAZOLE
     Indication: DYSPEPSIA
     Dosage: 15 MG, BID
  2. PREVACID 24 HR [Suspect]
     Active Substance: LANSOPRAZOLE
     Indication: GASTROOESOPHAGEAL REFLUX DISEASE

REACTIONS (5)
  - Product use in unapproved indication [Unknown]
  - Overdose [Unknown]
  - Product quality issue [Unknown]
  - Drug ineffective for unapproved indication [Unknown]
  - Incorrect drug administration duration [Unknown]
